FAERS Safety Report 9976761 (Version 1)
Quarter: 2014Q1

REPORT INFORMATION
  Report Type: Report from Study
  Country: US (occurrence: US)
  Receive Date: 20140306
  Receipt Date: 20140306
  Transmission Date: 20141002
  Serious: Yes (Hospitalization)
  Sender: FDA-Public Use
  Company Number: US-ABBVIE-13P-163-1164862-00

PATIENT
  Sex: Female
  Weight: 111.23 kg

DRUGS (3)
  1. HUMIRA [Suspect]
     Indication: RHEUMATOID ARTHRITIS
     Dates: start: 2007, end: 2011
  2. METHTEXATE [Concomitant]
     Indication: RHEUMATOID ARTHRITIS
  3. RITUXIMAB [Concomitant]
     Indication: RHEUMATOID ARTHRITIS

REACTIONS (1)
  - Breast cancer [Recovered/Resolved]
